FAERS Safety Report 6392257-5 (Version None)
Quarter: 2009Q4

REPORT INFORMATION
  Report Type: 
  Country: None (occurrence: None)
  Receive Date: 20091007
  Receipt Date: 20090928
  Transmission Date: 20100525
  Serious: Yes (Death, Hospitalization, Other)
  Sender: FDA-Public Use
  Company Number: US-BAXTER-2009BH013837

PATIENT
  Age: 42 Year
  Sex: Male

DRUGS (5)
  1. DIANEAL [Suspect]
     Indication: PERITONEAL DIALYSIS
     Route: 033
     Dates: start: 20081101, end: 20090901
  2. DIANEAL [Suspect]
     Route: 033
     Dates: start: 20090701, end: 20090801
  3. DIANEAL [Suspect]
     Route: 033
     Dates: start: 20081101, end: 20090701
  4. DIANEAL [Suspect]
     Indication: PERITONEAL DIALYSIS
     Route: 033
     Dates: start: 20090801, end: 20090801
  5. DIANEAL [Suspect]
     Route: 033
     Dates: start: 20090701, end: 20090701

REACTIONS (3)
  - RESPIRATORY ARREST [None]
  - SEPSIS [None]
  - WOUND INFECTION [None]
